FAERS Safety Report 10195369 (Version 3)
Quarter: 2014Q2

REPORT INFORMATION
  Report Type: Report from Study
  Country: IL (occurrence: IL)
  Receive Date: 20140526
  Receipt Date: 20140624
  Transmission Date: 20141212
  Serious: Yes (Other)
  Sender: FDA-Public Use
  Company Number: PHHY2013IL006791

PATIENT
  Sex: Male

DRUGS (2)
  1. SANDOSTATIN LAR [Suspect]
     Indication: CARCINOID TUMOUR
     Dosage: 30 MG, EVERY 28 DAYS
     Route: 030
     Dates: start: 20110414
  2. SANDOSTATIN LAR [Suspect]
     Dosage: 60 MG, EVERY 28 DAYS
     Route: 030

REACTIONS (4)
  - Vertebral column mass [Unknown]
  - Thymoma [Unknown]
  - Second primary malignancy [Unknown]
  - Malignant neoplasm progression [Unknown]
